FAERS Safety Report 9726744 (Version 1)
Quarter: 2013Q4

REPORT INFORMATION
  Report Type: Spontaneous
  Country: US (occurrence: None)
  Receive Date: 20131202
  Receipt Date: 20131202
  Transmission Date: 20140711
  Serious: Yes (Other)
  Sender: FDA-Public Use
  Company Number: None

PATIENT
  Age: 58 Year
  Sex: Female

DRUGS (8)
  1. AFINITOR [Suspect]
     Route: 048
  2. SYNTHROID [Concomitant]
  3. BONIVA [Concomitant]
  4. EXESTAME [Concomitant]
  5. TRAZODONE [Concomitant]
  6. ASPIRIN [Concomitant]
  7. SIMVASTATIN [Concomitant]
  8. ZOLOFT [Concomitant]

REACTIONS (2)
  - Stomatitis [None]
  - Epistaxis [None]
